FAERS Safety Report 4618878-5 (Version None)
Quarter: 2005Q1

REPORT INFORMATION
  Report Type: 
  Country: None (occurrence: None)
  Receive Date: 20050323
  Receipt Date: 20050311
  Transmission Date: 20050727
  Serious: Yes (Other)
  Sender: FDA-Public Use
  Company Number: 2005043956

PATIENT
  Age: 53 Year
  Sex: Female

DRUGS (5)
  1. PROVERA TABLET (MEDRODXYPROTESTERONE ACETATE) [Suspect]
     Indication: HORMONE REPLACEMENT THERAPY
     Dates: start: 19990601, end: 20010101
  2. PROVERA TABLET (MEDRODXYPROTESTERONE ACETATE) [Suspect]
     Indication: HORMONE REPLACEMENT THERAPY
     Dates: start: 20050101, end: 20030101
  3. ESTROGENS CONJUGATED (ESTROTENS CONJUGATED) [Suspect]
     Indication: HORMONE REPLACEMENT THERAPY
     Dates: start: 19990601, end: 20010101
  4. ESTROGENS CONJUGATED (ESTROTENS CONJUGATED) [Suspect]
     Indication: HORMONE REPLACEMENT THERAPY
     Dates: start: 20020101, end: 20030101
  5. PROVERA-14 (ESTROGENS CONJUGATED, MEDROXYPROGESTERONE ACETATE) [Suspect]
     Indication: HORMONE REPLACEMENT THERAPY
     Dates: start: 20010101, end: 20020101

REACTIONS (1)
  - BREAST CANCER FEMALE [None]
